FAERS Safety Report 25119994 (Version 3)
Quarter: 2025Q2

REPORT INFORMATION
  Report Type: Report from Study
  Country: US (occurrence: US)
  Receive Date: 20250325
  Receipt Date: 20250530
  Transmission Date: 20250717
  Serious: Yes (Other)
  Sender: TAKEDA
  Company Number: US-TAKEDA-2023TUS081773

PATIENT
  Age: 58 Year
  Sex: Female

DRUGS (4)
  1. TEDUGLUTIDE [Suspect]
     Active Substance: TEDUGLUTIDE
     Indication: Short-bowel syndrome
     Dosage: 4.1 MILLIGRAM, QD
     Dates: start: 20230312
  2. TEDUGLUTIDE [Suspect]
     Active Substance: TEDUGLUTIDE
     Dosage: 4.1 MILLIGRAM, QD
     Dates: start: 20230630
  3. TEDUGLUTIDE [Suspect]
     Active Substance: TEDUGLUTIDE
     Dosage: 4.1 MILLIGRAM, QD
     Dates: start: 20230710
  4. TEDUGLUTIDE [Suspect]
     Active Substance: TEDUGLUTIDE

REACTIONS (7)
  - Gastrointestinal stoma output increased [Recovered/Resolved]
  - Injection site bruising [Unknown]
  - Injection site pain [Unknown]
  - Malaise [Recovered/Resolved]
  - Incorrect dose administered [Unknown]
  - Product dose omission in error [Recovered/Resolved]
  - Sinusitis [Not Recovered/Not Resolved]

NARRATIVE: CASE EVENT DATE: 20230821
